FAERS Safety Report 10177919 (Version 1)
Quarter: 2014Q2

REPORT INFORMATION
  Report Type: Report from Study
  Country: BR (occurrence: BR)
  Receive Date: 20140516
  Receipt Date: 20140516
  Transmission Date: 20141212
  Serious: Yes (Other)
  Sender: FDA-Public Use
  Company Number: PHHY2014BR059781

PATIENT
  Sex: Female

DRUGS (2)
  1. ACLASTA [Suspect]
     Dosage: UNK UKN, UNK
  2. CALCIUM D3 /00944201/ [Suspect]
     Dosage: UNK UKN, UNK

REACTIONS (2)
  - Femur fracture [Unknown]
  - Abdominal pain upper [Unknown]
